FAERS Safety Report 21591793 (Version 2)
Quarter: 2024Q1

REPORT INFORMATION
  Report Type: Spontaneous
  Country: JP (occurrence: JP)
  Receive Date: 20221114
  Receipt Date: 20240305
  Transmission Date: 20240410
  Serious: Yes (Other)
  Sender: FDA-Public Use
  Company Number: JP-AMGEN-JPNSP2022193856

PATIENT
  Age: 6 Year
  Sex: Female
  Weight: 17 kg

DRUGS (1)
  1. BLINCYTO [Suspect]
     Active Substance: BLINATUMOMAB
     Indication: Product used for unknown indication
     Dosage: UNK, FIRST CYCLE, DRIP INFUSION
     Route: 040

REACTIONS (1)
  - Disease recurrence [Unknown]
